FAERS Safety Report 9297672 (Version 4)
Quarter: 2013Q4

REPORT INFORMATION
  Report Type: Report from Study
  Country: JP (occurrence: JP)
  Receive Date: 20130520
  Receipt Date: 20131107
  Transmission Date: 20140711
  Serious: Yes (Hospitalization)
  Sender: FDA-Public Use
  Company Number: PHHY2013JP049455

PATIENT
  Age: 22 Year
  Sex: Female

DRUGS (24)
  1. LEPONEX / CLOZARIL [Suspect]
     Indication: SCHIZOPHRENIA, PARANOID TYPE
     Dosage: 12.5 MG, DAILY
     Route: 048
     Dates: start: 20130306, end: 20130306
  2. LEPONEX / CLOZARIL [Suspect]
     Dosage: 25 MG, DAILY
     Route: 048
     Dates: start: 20130307, end: 20130309
  3. LEPONEX / CLOZARIL [Suspect]
     Dosage: 50 MG, UNK
     Route: 048
     Dates: start: 20130310, end: 20130312
  4. LEPONEX / CLOZARIL [Suspect]
     Dosage: 75 MG, UNK
     Route: 048
     Dates: start: 20130313, end: 20130314
  5. LEPONEX / CLOZARIL [Suspect]
     Dosage: 100 MG, UNK
     Route: 048
     Dates: start: 20130315, end: 20130316
  6. LEPONEX / CLOZARIL [Suspect]
     Dosage: 125 MG, UNK
     Route: 048
     Dates: start: 20130317, end: 20130319
  7. LEPONEX / CLOZARIL [Suspect]
     Dosage: 150 MG, UNK
     Route: 048
     Dates: start: 20130320, end: 20130322
  8. LEPONEX / CLOZARIL [Suspect]
     Dosage: 175 MG, UNK
     Route: 048
     Dates: start: 20130323, end: 20130325
  9. LEPONEX / CLOZARIL [Suspect]
     Dosage: 200 MG, UNK
     Route: 048
     Dates: start: 20130326, end: 20130402
  10. LEPONEX / CLOZARIL [Suspect]
     Dosage: 225 MG, UNK
     Route: 048
     Dates: start: 20130403, end: 20130409
  11. LEPONEX / CLOZARIL [Suspect]
     Dosage: 250 MG, UNK
     Route: 048
     Dates: start: 20130410, end: 20130416
  12. LEPONEX / CLOZARIL [Suspect]
     Dosage: 275 MG, UNK
     Route: 048
     Dates: start: 20130417, end: 20130514
  13. LEPONEX / CLOZARIL [Suspect]
     Dosage: 25 MG, UNK
     Route: 048
     Dates: start: 20130529, end: 20130604
  14. LEPONEX / CLOZARIL [Suspect]
     Dosage: 50 MG, UNK
     Route: 048
     Dates: start: 20130605
  15. ZYPREXA [Concomitant]
     Dosage: 30 MG, UNK
     Route: 048
     Dates: start: 20130306
  16. ZYPREXA [Concomitant]
     Dosage: 20 MG, UNK
     Route: 048
  17. ZYPREXA [Concomitant]
     Dosage: 10 MG, UNK
     Route: 048
     Dates: end: 20130325
  18. LONASEN [Concomitant]
     Dosage: 12 MG, UNK
     Route: 048
     Dates: start: 20130306, end: 20130309
  19. MAGLAX [Concomitant]
     Indication: CONSTIPATION
     Dosage: 660 MG, UNK
     Route: 048
  20. LIMAS [Concomitant]
     Indication: SCHIZOPHRENIA, PARANOID TYPE
     Dosage: 400 MG, UNK
     Route: 048
  21. LEUCON [Concomitant]
     Indication: WHITE BLOOD CELL COUNT DECREASED
     Dosage: 20 MG, UNK
     Route: 048
  22. LEUCON [Concomitant]
     Dosage: 40 MG, UNK
     Route: 048
  23. AKINETON//BIPERIDEN HYDROCHLORIDE [Concomitant]
     Indication: PARKINSONISM
     Dosage: 2 MG, UNK
     Route: 048
  24. AKINETON//BIPERIDEN HYDROCHLORIDE [Concomitant]
     Dosage: 1 MG, UNK
     Route: 048
     Dates: end: 20130325

REACTIONS (5)
  - Appendicitis [Recovering/Resolving]
  - Pain [Recovered/Resolved]
  - Pyrexia [Unknown]
  - Vomiting [Unknown]
  - Constipation [Unknown]
